FAERS Safety Report 9461768 (Version 1)
Quarter: 2013Q3

REPORT INFORMATION
  Report Type: Report from Study
  Country: CA (occurrence: CA)
  Receive Date: 20130816
  Receipt Date: 20130816
  Transmission Date: 20140515
  Serious: Yes (Death, Other)
  Sender: FDA-Public Use
  Company Number: CA-JNJFOC-20130807004

PATIENT
  Age: 51 Year
  Sex: Male
  Weight: 108.86 kg

DRUGS (6)
  1. REMICADE [Suspect]
     Indication: HIDRADENITIS
     Dosage: ONCE EVERY 4 TO 6 WEEKS.
     Route: 042
     Dates: start: 20090415, end: 20130709
  2. PAXIL [Concomitant]
     Dosage: ^DIE^
     Route: 065
  3. MOBICOX [Concomitant]
     Route: 065
  4. FOLIC ACID [Concomitant]
     Route: 048
  5. METHOTREXATE [Concomitant]
     Route: 065
  6. PANTOLOC [Concomitant]
     Route: 048

REACTIONS (3)
  - Transient ischaemic attack [Unknown]
  - Death [Fatal]
  - Off label use [Unknown]
